FAERS Safety Report 19974394 (Version 2)
Quarter: 2021Q4

REPORT INFORMATION
  Report Type: Report from Study
  Country: US (occurrence: US)
  Receive Date: 20211020
  Receipt Date: 20211105
  Transmission Date: 20220303
  Serious: Yes (Hospitalization, Other)
  Sender: FDA-Public Use
  Company Number: US-BIOVITRUM-2021US9137

PATIENT
  Sex: Male

DRUGS (2)
  1. KINERET [Suspect]
     Active Substance: ANAKINRA
     Indication: Rheumatoid arthritis
     Route: 058
     Dates: start: 201912
  2. KINERET [Suspect]
     Active Substance: ANAKINRA
     Route: 058
     Dates: start: 20201215

REACTIONS (1)
  - COVID-19 [Unknown]
